FAERS Safety Report 4455827-7 (Version None)
Quarter: 2004Q3

REPORT INFORMATION
  Report Type: 
  Country: None (occurrence: None)
  Receive Date: 20040922
  Receipt Date: 20040913
  Transmission Date: 20050211
  Serious: Yes (Hospitalization)
  Sender: FDA-Public Use
  Company Number: JP-BRISTOL-MYERS SQUIBB COMPANY-12703658

PATIENT
  Age: 16 Month
  Sex: Male

DRUGS (3)
  1. ENDOXAN [Suspect]
     Indication: RHABDOMYOSARCOMA
     Route: 042
     Dates: start: 20021021, end: 20021021
  2. COSMEGEN [Suspect]
     Indication: RHABDOMYOSARCOMA
     Route: 042
     Dates: start: 20021021, end: 20021021
  3. ONCOVIN [Suspect]
     Indication: RHABDOMYOSARCOMA
     Route: 042
     Dates: start: 20021021, end: 20021021

REACTIONS (3)
  - PLATELET COUNT DECREASED [None]
  - PLEURAL EFFUSION [None]
  - VENOOCCLUSIVE LIVER DISEASE [None]
